FAERS Safety Report 6747963-7 (Version None)
Quarter: 2010Q2

REPORT INFORMATION
  Report Type: 
  Country: None (occurrence: None)
  Receive Date: 20100528
  Receipt Date: 20100521
  Transmission Date: 20101027
  Serious: Yes (Other)
  Sender: FDA-Public Use
  Company Number: US-MERCK-1005USA03343

PATIENT
  Age: 10 Year
  Sex: Female

DRUGS (1)
  1. SINGULAIR [Suspect]
     Indication: ASTHMA EXERCISE INDUCED
     Route: 048
     Dates: start: 20051201

REACTIONS (5)
  - CONVULSION [None]
  - FOAMING AT MOUTH [None]
  - HEADACHE [None]
  - MOOD SWINGS [None]
  - PETIT MAL EPILEPSY [None]
